FAERS Safety Report 22533912 (Version 7)
Quarter: 2024Q3

REPORT INFORMATION
  Report Type: Spontaneous
  Country: CA (occurrence: CA)
  Receive Date: 20230608
  Receipt Date: 20240924
  Transmission Date: 20241016
  Serious: Yes (Hospitalization, Other)
  Sender: CELLTRION
  Company Number: CA-CELLTRION INC.-2022CA014167

PATIENT

DRUGS (13)
  1. INFLECTRA [Suspect]
     Active Substance: INFLIXIMAB-DYYB
     Indication: Crohn^s disease
     Dosage: 900 MG, REINDUCTION WEEKS 0, 2 AND 6 THEN MAINTENANCE EVERY 5 WEEKS
     Route: 042
     Dates: start: 20220930
  2. INFLECTRA [Suspect]
     Active Substance: INFLIXIMAB-DYYB
     Dosage: 900 MG, REINDUCTION WEEKS 0, 2 AND 6 THEN MAINTENANCE EVERY 5 WEEKS
     Route: 042
     Dates: start: 20221014
  3. INFLECTRA [Suspect]
     Active Substance: INFLIXIMAB-DYYB
     Dosage: 900 MG, REINDUCTION WEEKS 0, 2 AND 6 THEN MAINTENANCE EVERY 5 WEEKS
     Route: 042
     Dates: start: 20221209
  4. INFLECTRA [Suspect]
     Active Substance: INFLIXIMAB-DYYB
     Dosage: 900 MG, REINDUCTION WEEKS 0, 2 AND 6 THEN MAINTENANCE EVERY 5 WEEKS
     Route: 042
     Dates: start: 20230111
  5. INFLECTRA [Suspect]
     Active Substance: INFLIXIMAB-DYYB
     Dosage: 900 MG, EVERY 5 WEEKS
     Route: 042
     Dates: start: 20230428
  6. INFLECTRA [Suspect]
     Active Substance: INFLIXIMAB-DYYB
     Dosage: 900 MG, EVERY 5 WEEKS
     Route: 042
     Dates: start: 20230428
  7. INFLECTRA [Suspect]
     Active Substance: INFLIXIMAB-DYYB
     Dosage: 900 MG, EVERY 5 WEEKS
     Route: 042
     Dates: start: 20240109
  8. INFLECTRA [Suspect]
     Active Substance: INFLIXIMAB-DYYB
     Dosage: 900 MG, EVERY 5 WEEKS
     Route: 042
     Dates: start: 20240809
  9. METHYLPHENIDATE [Concomitant]
     Active Substance: METHYLPHENIDATE
     Dosage: 50 MG, DAILY
     Route: 048
  10. METHYLPHENIDATE [Concomitant]
     Active Substance: METHYLPHENIDATE
     Dosage: 40 MG, DAILY
     Route: 048
  11. DIPHENHYDRAMINE [Concomitant]
     Active Substance: DIPHENHYDRAMINE
     Indication: Premedication
     Dosage: 50 MG
     Route: 042
  12. HYDROCORTISONE [Concomitant]
     Active Substance: HYDROCORTISONE\HYDROCORTISONE ACETATE
     Indication: Premedication
     Dosage: 100 MG
  13. EFFEXOR [Concomitant]
     Active Substance: VENLAFAXINE HYDROCHLORIDE
     Indication: Anxiety
     Dosage: UNK

REACTIONS (15)
  - Skin laceration [Unknown]
  - Accident at work [Unknown]
  - Uveitis [Recovered/Resolved]
  - Condition aggravated [Recovered/Resolved]
  - COVID-19 [Recovering/Resolving]
  - Psoriasis [Not Recovered/Not Resolved]
  - Fall [Unknown]
  - Gait disturbance [Unknown]
  - Arthralgia [Not Recovered/Not Resolved]
  - Rash erythematous [Unknown]
  - Rash pruritic [Unknown]
  - Conjunctivitis [Recovering/Resolving]
  - Off label use [Unknown]
  - Off label use [Unknown]
  - Intentional product use issue [Unknown]

NARRATIVE: CASE EVENT DATE: 20220101
